FAERS Safety Report 10130268 (Version 1)
Quarter: 2014Q2

REPORT INFORMATION
  Report Type: Spontaneous
  Country: US (occurrence: None)
  Receive Date: 20140425
  Receipt Date: 20140425
  Transmission Date: 20141212
  Serious: Yes (Other)
  Sender: FDA-Public Use
  Company Number: None

PATIENT
  Age: 48 Year
  Sex: Female

DRUGS (1)
  1. CORTICOSTEROID [Suspect]
     Indication: BACK PAIN

REACTIONS (2)
  - Loss of consciousness [None]
  - CSF test abnormal [None]
